FAERS Safety Report 8359940-3 (Version None)
Quarter: 2012Q2

REPORT INFORMATION
  Report Type: 
  Country: None (occurrence: None)
  Receive Date: 20120515
  Receipt Date: 20120510
  Transmission Date: 20120825
  Serious: Yes (Death, Hospitalization)
  Sender: FDA-Public Use
  Company Number: PHHO2012ES007155

PATIENT
  Sex: Male
  Weight: 88 kg

DRUGS (3)
  1. BLINDED NO TREATMENT RECEIVED [Suspect]
     Indication: CARDIAC FAILURE
     Dosage: DOUBLE BLIND
     Route: 048
     Dates: start: 20110111, end: 20110124
  2. ENALAPRIL MALEATE [Suspect]
     Indication: CARDIAC FAILURE
     Dosage: DOUBLE BLIND
     Route: 048
     Dates: start: 20110111, end: 20110124
  3. BLINDED ALISKIREN [Suspect]
     Indication: CARDIAC FAILURE
     Dosage: DOUBLE BLIND
     Route: 048
     Dates: start: 20110111, end: 20110124

REACTIONS (3)
  - CARDIAC FAILURE [None]
  - RESPIRATORY FAILURE [None]
  - RENAL FAILURE [None]
